FAERS Safety Report 6796005-6 (Version None)
Quarter: 2010Q2

REPORT INFORMATION
  Report Type: 
  Country: None (occurrence: None)
  Receive Date: 20100625
  Receipt Date: 20100616
  Transmission Date: 20101027
  Serious: Yes (Other)
  Sender: FDA-Public Use
  Company Number: US-JNJFOC-20100605707

PATIENT
  Age: 79 Year
  Sex: Female
  Weight: 86.18 kg

DRUGS (3)
  1. EXTRA STRENGTH TYLENOL [Suspect]
     Route: 048
  2. EXTRA STRENGTH TYLENOL [Suspect]
     Indication: PYREXIA
     Route: 048
  3. INSULIN [Concomitant]
     Indication: DIABETES MELLITUS
     Route: 050

REACTIONS (2)
  - BLOOD GLUCOSE INCREASED [None]
  - EXPIRED DRUG ADMINISTERED [None]
